FAERS Safety Report 8035954-8 (Version None)
Quarter: 2012Q1

REPORT INFORMATION
  Report Type: 
  Country: None (occurrence: None)
  Receive Date: 20120106
  Receipt Date: 20111228
  Transmission Date: 20120608
  Serious: Yes (Death, Hospitalization, Other)
  Sender: FDA-Public Use
  Company Number: US-2011-10325

PATIENT
  Age: 58 Year
  Sex: Male

DRUGS (14)
  1. THROMBOMODULIN ALFA (THROMBOMODULIN ALFA) [Concomitant]
  2. MAXIPIME [Concomitant]
  3. HANP (CARPERITIDE) [Concomitant]
  4. VFEND [Concomitant]
  5. CYCLOSPORINE [Concomitant]
  6. MEROPENEM [Concomitant]
  7. CYCLOPHOSPHAMIDE [Concomitant]
  8. NOVO HEPARIN (HEPARIN) [Concomitant]
  9. FUNGUARD (MICAFUNGIN SODIUM) [Concomitant]
  10. METHOTREXATE [Concomitant]
  11. MESNA [Concomitant]
  12. SANDIMMUNE [Concomitant]
  13. ZYVOX [Concomitant]
  14. BUSULFAN [Suspect]
     Indication: STEM CELL TRANSPLANT
     Dosage: 52 MG MILLIGRAM(S), QID, INTRAVENOUS
     Route: 042
     Dates: start: 20100707, end: 20100710

REACTIONS (10)
  - PLEURAL EFFUSION [None]
  - WEIGHT INCREASED [None]
  - HISTIOCYTOSIS HAEMATOPHAGIC [None]
  - FEBRILE NEUTROPENIA [None]
  - FUNGAL SEPSIS [None]
  - SYSTEMIC CANDIDA [None]
  - CYTOMEGALOVIRUS INFECTION [None]
  - THROMBOTIC MICROANGIOPATHY [None]
  - HEPATIC FAILURE [None]
  - VENOOCCLUSIVE LIVER DISEASE [None]
